FAERS Safety Report 8065298-X (Version None)
Quarter: 2011Q4

REPORT INFORMATION
  Report Type: 
  Country: None (occurrence: None)
  Receive Date: 20111221
  Receipt Date: 20110627
  Transmission Date: 20120403
  Serious: Yes (Other)
  Sender: FDA-Public Use
  Company Number: PHHY2011US56822

PATIENT
  Age: 70 Year
  Sex: Female
  Weight: 63.4 kg

DRUGS (1)
  1. EXJADE [Suspect]
     Indication: IRON METABOLISM DISORDER
     Dosage: 1500 MG, DAILY, ORAL
     Route: 048
     Dates: start: 20110601, end: 20110701

REACTIONS (1)
  - DEAFNESS NEUROSENSORY [None]
